FAERS Safety Report 5912418-6 (Version None)
Quarter: 2008Q4

REPORT INFORMATION
  Report Type: 
  Country: None (occurrence: None)
  Receive Date: 20081007
  Receipt Date: 20081007
  Transmission Date: 20090506
  Serious: Yes (Hospitalization)
  Sender: FDA-Public Use
  Company Number: None

PATIENT
  Age: 64 Year
  Sex: Male
  Weight: 91.63 kg

DRUGS (2)
  1. ALPRAZOLAM [Suspect]
     Dosage: 0.5 MG BID PO
     Route: 048
     Dates: start: 20081001
  2. TOPIRAMATE [Suspect]
     Indication: AFFECTIVE DISORDER
     Dosage: 50 MG BID PO
     Route: 048
     Dates: start: 20080926

REACTIONS (6)
  - CONFUSIONAL STATE [None]
  - DYSARTHRIA [None]
  - GAIT DISTURBANCE [None]
  - INCORRECT DOSE ADMINISTERED [None]
  - SEDATION [None]
  - SOMNOLENCE [None]
